FAERS Safety Report 7814271-2 (Version None)
Quarter: 2011Q4

REPORT INFORMATION
  Report Type: 
  Country: None (occurrence: None)
  Receive Date: 20111012
  Receipt Date: 20110926
  Transmission Date: 20120403
  Serious: Yes (Life-Threatening, Hospitalization, Congenital Anomaly, Other)
  Sender: FDA-Public Use
  Company Number: E2B_00000112

PATIENT
  Sex: Male
  Weight: 3.45 kg

DRUGS (4)
  1. SERTRALINE HYDROCHLORIDE [Suspect]
     Indication: DEPRESSION
     Dosage: 150 [MG/D (100-0-50)], TRANSPLACENTAL
     Route: 064
     Dates: start: 20100512, end: 20110106
  2. PROMETHAZINE [Suspect]
     Indication: DEPRESSION
     Dosage: 60 [MG/D (30-0-30)],TRANSPLACENTAL
     Route: 064
     Dates: start: 20100327, end: 20110106
  3. FOLIC ACID [Concomitant]
  4. LEVOTHYROXINE SODIUM POTASSIUM IODIDE (THYRONAJOD) [Concomitant]

REACTIONS (3)
  - FALLOT'S TETRALOGY [None]
  - MATERNAL DRUGS AFFECTING FOETUS [None]
  - NEONATAL RESPIRATORY DISTRESS SYNDROME [None]
